FAERS Safety Report 8837127 (Version 9)
Quarter: 2013Q2

REPORT INFORMATION
  Report Type: Spontaneous
  Country: GB (occurrence: GB)
  Receive Date: 20121012
  Receipt Date: 20130617
  Transmission Date: 20140414
  Serious: Yes (Other)
  Sender: FDA-Public Use
  Company Number: PHFR2012GB005354

PATIENT
  Age: 38 Year
  Sex: Male

DRUGS (8)
  1. CLOZARIL [Suspect]
     Indication: SCHIZOPHRENIA
     Dosage: 250 MG, UNK
     Route: 048
     Dates: start: 20080806
  2. PEGYLATED INTERFERON ALFA-2A [Suspect]
     Indication: HEPATIC FIBROSIS
     Dosage: UNK UKN, UNK
     Dates: start: 201208
  3. RIBAVIRIN [Suspect]
     Indication: HEPATIC FIBROSIS
     Dosage: UNK
     Dates: start: 201208
  4. SUBOXONE [Concomitant]
     Indication: SUBSTANCE ABUSE
     Dosage: 10 MG, QD
     Route: 048
  5. GABAPENTINE [Concomitant]
     Indication: EPILEPSY
     Dosage: UNK UKN, UNK
     Route: 048
  6. LANSOPRAZOLE [Concomitant]
     Indication: DYSPEPSIA
     Dosage: UNK UKN, UNK
     Route: 048
  7. ZOPICLONE [Concomitant]
     Indication: INSOMNIA
     Dosage: 7.5 MG, TID
  8. INTERFERON [Concomitant]
     Dosage: UNK UKN, UNK

REACTIONS (5)
  - Chronic hepatitis C [Not Recovered/Not Resolved]
  - Hepatic fibrosis [Not Recovered/Not Resolved]
  - White blood cell count decreased [Recovered/Resolved]
  - Neutrophil count decreased [Recovered/Resolved]
  - Platelet count decreased [Recovered/Resolved]
